FAERS Safety Report 10068651 (Version 2)
Quarter: 2014Q2

REPORT INFORMATION
  Report Type: Spontaneous
  Country: BE (occurrence: BE)
  Receive Date: 20140409
  Receipt Date: 20140616
  Transmission Date: 20141212
  Serious: Yes (Other)
  Sender: FDA-Public Use
  Company Number: BE-GLAXOSMITHKLINE-B0984185A

PATIENT
  Sex: Male

DRUGS (5)
  1. REQUIP-MODUTAB [Suspect]
     Indication: PRODUCT USED FOR UNKNOWN INDICATION
     Dosage: 16MG PER DAY
     Route: 065
  2. AZILECT [Concomitant]
     Dosage: 1MG IN THE MORNING
  3. PROLOPA [Concomitant]
     Dosage: .5TAB FOUR TIMES PER DAY
  4. EFEXOR [Concomitant]
     Dosage: 150MG IN THE MORNING
  5. COVERAM [Concomitant]
     Dosage: 1TAB IN THE MORNING

REACTIONS (1)
  - Diabetic retinopathy [Unknown]
